FAERS Safety Report 12499959 (Version 1)
Quarter: 2016Q2

REPORT INFORMATION
  Report Type: Spontaneous
  Country: US (occurrence: None)
  Receive Date: 20160624
  Receipt Date: 20160624
  Transmission Date: 20160815
  Serious: Yes (Other)
  Sender: FDA-Public Use
  Company Number: None

PATIENT
  Age: 27 Year
  Sex: Male

DRUGS (1)
  1. LAMOTRIGINE  100MG ZYDUS PHARMACEUTICALS [Suspect]
     Active Substance: LAMOTRIGINE
     Indication: BIPOLAR DISORDER
     Dosage: 100 MG T PO Q HS ORAL
     Route: 048
     Dates: start: 20160603, end: 20160614

REACTIONS (5)
  - Mood swings [None]
  - Vision blurred [None]
  - Anxiety [None]
  - Sedation [None]
  - Feeling abnormal [None]

NARRATIVE: CASE EVENT DATE: 20160614
